FAERS Safety Report 4935357-6 (Version None)
Quarter: 2006Q1

REPORT INFORMATION
  Report Type: 
  Country: None (occurrence: None)
  Receive Date: 20060302
  Receipt Date: 20060220
  Transmission Date: 20060701
  Serious: Yes (Death)
  Sender: FDA-Public Use
  Company Number: US200602002406

PATIENT
  Age: 20 Year
  Sex: Female

DRUGS (5)
  1. ZYPREXA [Suspect]
     Indication: IMPULSE-CONTROL DISORDER
     Dosage: 15 MG, ORAL
     Route: 048
  2. TOPAMAX [Concomitant]
  3. CARBAMAZEPINE [Concomitant]
  4. LEVOTHYROXINE SODIUM [Concomitant]
  5. LITHIUM (LITHIUM) [Concomitant]

REACTIONS (1)
  - DRUG TOXICITY [None]
